FAERS Safety Report 4386609-2 (Version None)
Quarter: 2004Q2

REPORT INFORMATION
  Report Type: 
  Country: None (occurrence: None)
  Receive Date: 20040629
  Receipt Date: 20040528
  Transmission Date: 20050107
  Serious: Yes (Other)
  Sender: FDA-Public Use
  Company Number: IE-GLAXOSMITHKLINE-B0334398A

PATIENT
  Sex: Female

DRUGS (2)
  1. LAMICTAL [Suspect]
     Indication: EPILEPSY
     Dosage: 100MG TWICE PER DAY
     Route: 048
  2. TEGRETOL [Concomitant]
     Indication: EPILEPSY
     Dosage: 600MG TWICE PER DAY

REACTIONS (6)
  - DYSGEUSIA [None]
  - EMOTIONAL DISTRESS [None]
  - EYE DISORDER [None]
  - HEADACHE [None]
  - PAIN [None]
  - VISION BLURRED [None]
